FAERS Safety Report 7533753-4 (Version None)
Quarter: 2011Q2

REPORT INFORMATION
  Report Type: 
  Country: None (occurrence: None)
  Receive Date: 20110608
  Receipt Date: 20110526
  Transmission Date: 20111010
  Serious: Yes (Hospitalization, Other)
  Sender: FDA-Public Use
  Company Number: US-UCBSA-034342

PATIENT
  Sex: Female

DRUGS (2)
  1. KEPPRA XR [Suspect]
     Dosage: 750 MG
  2. KEPPRA XR [Suspect]
     Dosage: 750MG

REACTIONS (1)
  - CEREBROVASCULAR ACCIDENT [None]
